FAERS Safety Report 6155630-6 (Version None)
Quarter: 2009Q2

REPORT INFORMATION
  Report Type: 
  Country: None (occurrence: None)
  Receive Date: 20090413
  Receipt Date: 20090413
  Transmission Date: 20091009
  Serious: No
  Sender: FDA-Public Use
  Company Number: None

PATIENT
  Age: 68 Year
  Sex: Female
  Weight: 68.9467 kg

DRUGS (1)
  1. LYRICA [Suspect]
     Indication: FIBROMYALGIA
     Dosage: 2 CAPSULES DAILY
     Dates: start: 20070404, end: 20090329

REACTIONS (10)
  - BALANCE DISORDER [None]
  - EUPHORIC MOOD [None]
  - FALL [None]
  - GAIT DISTURBANCE [None]
  - INSOMNIA [None]
  - MYALGIA [None]
  - OEDEMA PERIPHERAL [None]
  - PAIN IN EXTREMITY [None]
  - VISION BLURRED [None]
  - WEIGHT INCREASED [None]
